FAERS Safety Report 4923665-4 (Version None)
Quarter: 2006Q1

REPORT INFORMATION
  Report Type: 
  Country: None (occurrence: None)
  Receive Date: 20060227
  Receipt Date: 20051003
  Transmission Date: 20060701
  Serious: Yes (Hospitalization, Other)
  Sender: FDA-Public Use
  Company Number: US-MERCK-0510USA02655

PATIENT
  Age: 53 Year
  Sex: Female
  Weight: 85 kg

DRUGS (2)
  1. VIOXX [Suspect]
     Indication: PAIN MANAGEMENT
     Route: 048
     Dates: start: 20001120, end: 20040604
  2. VIOXX [Suspect]
     Route: 065
     Dates: start: 19990101

REACTIONS (8)
  - ANGINA UNSTABLE [None]
  - ANXIETY [None]
  - ARTERIAL OCCLUSIVE DISEASE [None]
  - CORONARY ARTERY DISEASE [None]
  - DEPRESSION [None]
  - EPISTAXIS [None]
  - LIMB INJURY [None]
  - MYOCARDIAL INFARCTION [None]
